FAERS Safety Report 17085238 (Version 1)
Quarter: 2019Q4

REPORT INFORMATION
  Report Type: Spontaneous
  Country: SE (occurrence: SE)
  Receive Date: 20191127
  Receipt Date: 20191127
  Transmission Date: 20200122
  Serious: Yes (Other)
  Sender: FDA-Public Use
  Company Number: SE-009507513-1911SWE009692

PATIENT
  Sex: Male
  Weight: 74 kg

DRUGS (5)
  1. DESLORATADINE. [Suspect]
     Active Substance: DESLORATADINE
     Dosage: 30 MILLIGRAM
     Route: 048
     Dates: start: 20181116, end: 20181116
  2. ESOMEPRAZOLE. [Suspect]
     Active Substance: ESOMEPRAZOLE MAGNESIUM
     Dosage: 100 MILLIGRAM
     Route: 048
     Dates: start: 20181116, end: 20181116
  3. CISORDINOL TABLETS [Suspect]
     Active Substance: ZUCLOPENTHIXOL
     Dosage: 18 MILLIGRAM
     Route: 048
     Dates: start: 20181116, end: 20181116
  4. ATORBIR [Suspect]
     Active Substance: ATORVASTATIN
     Dosage: ^ATORBIR 80^
     Route: 048
     Dates: start: 20181116, end: 20181116
  5. LERGIGAN (PROMETHAZINE HYDROCHLORIDE) [Suspect]
     Active Substance: PROMETHAZINE HYDROCHLORIDE
     Dosage: ^LERGIGAN 325 MG 18.40-21.10 125 MG^
     Route: 048
     Dates: start: 20181116, end: 20181116

REACTIONS (2)
  - Intentional self-injury [Unknown]
  - Intentional overdose [Unknown]

NARRATIVE: CASE EVENT DATE: 20181116
